FAERS Safety Report 5188027-6 (Version None)
Quarter: 2006Q4

REPORT INFORMATION
  Report Type: 
  Country: None (occurrence: None)
  Receive Date: 20061214
  Receipt Date: 20061204
  Transmission Date: 20070319
  Serious: No
  Sender: FDA-Public Use
  Company Number: 06H-129-0311458-00

PATIENT
  Age: 24 Year
  Sex: Male

DRUGS (7)
  1. DEXMEDETOMIDINE INJECTION (DEXMEDETOMIDINE HYDROCHLORIDE INJECTION) (D [Suspect]
     Indication: POSTOPERATIVE ANALGESIA
     Dosage: 100 MCG , INTRAVENOUS
     Route: 042
  2. FENTANYL [Suspect]
     Indication: ANAESTHESIA
     Dosage: 0.55 MG
  3. TRAMADOL HCL [Concomitant]
  4. SEVOFLURANE [Concomitant]
  5. OXYGEN [Concomitant]
  6. NIMBEX [Concomitant]
  7. KETOPROFEN [Concomitant]

REACTIONS (3)
  - APNOEA [None]
  - DRUG INTERACTION [None]
  - LOSS OF CONSCIOUSNESS [None]
